FAERS Safety Report 18544489 (Version 1)
Quarter: 2020Q4

REPORT INFORMATION
  Report Type: Spontaneous
  Country: US (occurrence: US)
  Receive Date: 20201124
  Receipt Date: 20201124
  Transmission Date: 20210114
  Serious: Yes (Other)
  Sender: FDA-Public Use
  Company Number: None

PATIENT
  Age: 72 Year
  Sex: Male

DRUGS (2)
  1. ABIRATERONE TAB 250MG [Suspect]
     Active Substance: ABIRATERONE
     Route: 048
     Dates: end: 20201120
  2. PREDNISONE. [Suspect]
     Active Substance: PREDNISONE

REACTIONS (1)
  - Fatigue [None]

NARRATIVE: CASE EVENT DATE: 20191122
